FAERS Safety Report 4653469-1 (Version None)
Quarter: 2005Q2

REPORT INFORMATION
  Report Type: 
  Country: None (occurrence: None)
  Receive Date: 20050505
  Receipt Date: 20050323
  Transmission Date: 20051028
  Serious: Yes (Hospitalization)
  Sender: FDA-Public Use
  Company Number: GB-GLAXOSMITHKLINE-B0375707A

PATIENT
  Age: 61 Year
  Sex: Female
  Weight: 133.6 kg

DRUGS (5)
  1. REQUIP [Suspect]
     Dosage: 3MG THREE TIMES PER DAY
     Route: 048
  2. SINEMET [Concomitant]
     Dosage: 2TAB SIX TIMES PER DAY
     Route: 048
  3. SINEMET CR [Concomitant]
     Dosage: 1TAB AT NIGHT
     Route: 048
  4. ZELAPAR [Concomitant]
     Dosage: 1.25MG IN THE MORNING
     Route: 048
     Dates: start: 20050310
  5. ENTACAPONE [Concomitant]
     Dosage: 200MG VARIABLE DOSE
     Route: 048
     Dates: start: 20050401

REACTIONS (3)
  - MOBILITY DECREASED [None]
  - OEDEMA [None]
  - OEDEMA PERIPHERAL [None]
